FAERS Safety Report 5862462-2 (Version None)
Quarter: 2008Q3

REPORT INFORMATION
  Report Type: 
  Country: None (occurrence: None)
  Receive Date: 20080828
  Receipt Date: 20080818
  Transmission Date: 20090109
  Serious: Yes (Death)
  Sender: FDA-Public Use
  Company Number: US-ELI_LILLY_AND_COMPANY-US200808004080

PATIENT
  Sex: Male

DRUGS (3)
  1. OLANZAPINE [Suspect]
  2. ZOLPIDEM [Interacting]
     Indication: INSOMNIA
  3. DIPHENHYDRAMINE HCL [Interacting]

REACTIONS (2)
  - ACCIDENT [None]
  - DRUG INTERACTION [None]
